FAERS Safety Report 8552262-7 (Version None)
Quarter: 2012Q3

REPORT INFORMATION
  Report Type: 
  Country: None (occurrence: None)
  Receive Date: 20120723
  Receipt Date: 20120723
  Transmission Date: 20120928
  Serious: No
  Sender: FDA-Public Use
  Company Number: None

PATIENT
  Age: 3 Year
  Sex: Female
  Weight: 14 kg

DRUGS (1)
  1. ONDANSETRON [Suspect]
     Indication: GASTROENTERITIS
     Dosage: 4 MG Q6H PO
     Route: 048
     Dates: start: 20120620, end: 20120621

REACTIONS (11)
  - EYE MOVEMENT DISORDER [None]
  - MUSCLE TWITCHING [None]
  - AGGRESSION [None]
  - VIRAL INFECTION [None]
  - GRIMACING [None]
  - DIARRHOEA [None]
  - TARDIVE DYSKINESIA [None]
  - COMPULSIVE LIP BITING [None]
  - PYREXIA [None]
  - VOMITING [None]
  - TREMOR [None]
